FAERS Safety Report 11424389 (Version 3)
Quarter: 2015Q3

REPORT INFORMATION
  Report Type: Spontaneous
  Country: GB (occurrence: GB)
  Receive Date: 20150827
  Receipt Date: 20150923
  Transmission Date: 20151125
  Serious: Yes (Other)
  Sender: FDA-Public Use
  Company Number: GB-CONCORDIA PHARMACEUTICALS INC.-CO-PL-UK-2015-188

PATIENT
  Age: 68 Year
  Sex: Female

DRUGS (1)
  1. HYDROXYCHLOROQUINE SULFATE. [Suspect]
     Active Substance: HYDROXYCHLOROQUINE SULFATE
     Indication: SYSTEMIC LUPUS ERYTHEMATOSUS
     Route: 048
     Dates: start: 2015

REACTIONS (6)
  - Systemic lupus erythematosus [None]
  - Dyspepsia [None]
  - Drug ineffective [None]
  - Nausea [None]
  - Headache [None]
  - Fatigue [None]

NARRATIVE: CASE EVENT DATE: 201507
